FAERS Safety Report 13129584 (Version 1)
Quarter: 2017Q1

REPORT INFORMATION
  Report Type: Spontaneous
  Country: US (occurrence: US)
  Receive Date: 20170117
  Receipt Date: 20170117
  Transmission Date: 20170428
  Serious: Yes (Hospitalization)
  Sender: FDA-Public Use
  Company Number: None

PATIENT
  Age: 70 Year
  Sex: Female

DRUGS (9)
  1. REVLIMID [Suspect]
     Active Substance: LENALIDOMIDE
     Indication: PLASMA CELL MYELOMA
     Dosage: 10MG DAILY X 21D/28D ORAL
     Route: 048
     Dates: start: 201607, end: 201612
  2. OLANZAPINE. [Concomitant]
     Active Substance: OLANZAPINE
  3. DARATUMUMAB [Concomitant]
     Active Substance: DARATUMUMAB
  4. FAMOTIDINE. [Concomitant]
     Active Substance: FAMOTIDINE
  5. LEVOTHYROXINE. [Concomitant]
     Active Substance: LEVOTHYROXINE
  6. ATORVASTATIN [Concomitant]
     Active Substance: ATORVASTATIN
  7. ACYCLOVIR. [Concomitant]
     Active Substance: ACYCLOVIR
  8. LENALIDOMIDE [Concomitant]
     Active Substance: LENALIDOMIDE
  9. ASPIRIN. [Concomitant]
     Active Substance: ASPIRIN

REACTIONS (3)
  - Sepsis [None]
  - Pancytopenia [None]
  - Febrile neutropenia [None]

NARRATIVE: CASE EVENT DATE: 20161209
